FAERS Safety Report 9456086 (Version 2)
Quarter: 2014Q2

REPORT INFORMATION
  Report Type: Report from Study
  Country: US (occurrence: US)
  Receive Date: 20130813
  Receipt Date: 20140523
  Transmission Date: 20141212
  Serious: Yes (Hospitalization)
  Sender: FDA-Public Use
  Company Number: US-ACTELION-A-US2013-86878

PATIENT
  Age: 68 Year
  Sex: Female

DRUGS (9)
  1. TRACLEER [Suspect]
     Indication: PULMONARY ARTERIAL HYPERTENSION
     Dosage: 125 MG, BID
     Route: 048
     Dates: start: 201004
  2. BUPROPION [Concomitant]
     Dosage: 150 MG, QD
  3. COUMADIN [Concomitant]
     Dosage: 5 MG, QD
  4. OXYBUTIN [Concomitant]
     Dosage: 5 MG, QD
     Dates: start: 2012
  5. SERTRALINE [Concomitant]
     Dosage: 50 MG, QD
  6. OXYGEN [Concomitant]
     Dosage: 2 L/MIN, CONTINUOUS
  7. LASIX [Concomitant]
     Dosage: 40 MG, AS DIRECTED
     Dates: start: 2011
  8. ZOLOFT [Concomitant]
     Dosage: 100 MG, UNK
  9. RESTASIS [Concomitant]
     Dosage: 1 UNK, UNK

REACTIONS (20)
  - Thrombosis [Recovered/Resolved]
  - Nasal congestion [Recovered/Resolved]
  - Dyspnoea [Not Recovered/Not Resolved]
  - Blood potassium decreased [Recovering/Resolving]
  - Blood calcium decreased [Recovered/Resolved]
  - Pulmonary arterial pressure increased [Not Recovered/Not Resolved]
  - Arterial injury [Not Recovered/Not Resolved]
  - Swelling [Recovering/Resolving]
  - Vitamin D decreased [Recovering/Resolving]
  - Cataract [Not Recovered/Not Resolved]
  - Halo vision [Not Recovered/Not Resolved]
  - Vision blurred [Not Recovered/Not Resolved]
  - Eye haemorrhage [Not Recovered/Not Resolved]
  - Eye irritation [Not Recovered/Not Resolved]
  - Visual impairment [Not Recovered/Not Resolved]
  - Visual acuity reduced [Not Recovered/Not Resolved]
  - Macular degeneration [Not Recovered/Not Resolved]
  - Condition aggravated [Not Recovered/Not Resolved]
  - Muscle fatigue [Not Recovered/Not Resolved]
  - International normalised ratio decreased [Not Recovered/Not Resolved]
